FAERS Safety Report 8458022-X (Version None)
Quarter: 2012Q2

REPORT INFORMATION
  Report Type: 
  Country: None (occurrence: None)
  Receive Date: 20120622
  Receipt Date: 20120612
  Transmission Date: 20120825
  Serious: Yes (Hospitalization)
  Sender: FDA-Public Use
  Company Number: US-GENZYME-THYM-1003279

PATIENT
  Sex: Female
  Weight: 91.63 kg

DRUGS (34)
  1. SODIUM CHLORIDE [Concomitant]
     Indication: PRODUCT USED FOR UNKNOWN INDICATION
     Dosage: 1000 ML, UNK
     Route: 042
     Dates: start: 20110506, end: 20110506
  2. CARDIZEM CD [Concomitant]
     Indication: HYPERTENSION
     Dosage: 180 MG, BID
     Route: 048
     Dates: start: 20120402
  3. APRESOLINE [Concomitant]
     Indication: HYPERTENSION
     Dosage: 25 MG, BID
     Route: 048
     Dates: start: 20110506, end: 20110507
  4. LANTUS [Concomitant]
     Indication: TYPE 1 DIABETES MELLITUS
     Dosage: 35 IU, QD
     Route: 058
     Dates: start: 20110506, end: 20110507
  5. PROCRIT [Concomitant]
     Indication: ANAEMIA
     Dosage: 20000 IU, 1X/W
     Route: 058
  6. LASIX [Concomitant]
     Indication: HYPERTENSION
     Dosage: 20 MG, QD
     Route: 048
  7. MYCOSTATIN [Concomitant]
     Dosage: 5 ML, TID
     Route: 048
  8. VERSED [Concomitant]
     Indication: PRODUCT USED FOR UNKNOWN INDICATION
     Dosage: 0.25-2 MG, UNK
     Route: 042
     Dates: start: 20110506, end: 20110506
  9. DELTASONE [Concomitant]
     Indication: PRODUCT USED FOR UNKNOWN INDICATION
     Dosage: 5 MG, QD
     Route: 048
     Dates: start: 20110507, end: 20110507
  10. MYCOSTATIN [Concomitant]
     Indication: PRODUCT USED FOR UNKNOWN INDICATION
     Dosage: 500000 IU, TID
     Route: 048
     Dates: start: 20110506
  11. PROGRAF [Concomitant]
     Indication: PROPHYLAXIS AGAINST TRANSPLANT REJECTION
     Dosage: UNK
     Route: 065
  12. ACETAMINOPHEN [Concomitant]
     Indication: PRODUCT USED FOR UNKNOWN INDICATION
     Dosage: 650 MG, ONCE
     Route: 048
     Dates: start: 20110507, end: 20110507
  13. SULFAMETHOXAZOLE W [Concomitant]
     Indication: PRODUCT USED FOR UNKNOWN INDICATION
     Dosage: 400-80 MG, 3X/W
     Route: 048
     Dates: end: 20110507
  14. DEXTROSE 50% [Concomitant]
     Dosage: 50 ML, PRN
     Route: 042
     Dates: start: 20110506, end: 20110507
  15. HUMALOG [Concomitant]
     Dosage: 1-9 IU, TID
     Route: 058
     Dates: start: 20110507, end: 20110507
  16. MYFORTIC [Concomitant]
     Indication: PRODUCT USED FOR UNKNOWN INDICATION
     Dosage: 360 MG, BID
     Route: 048
     Dates: start: 20110331
  17. ZOFRAN [Concomitant]
     Indication: PRODUCT USED FOR UNKNOWN INDICATION
     Dosage: 4 MG, UNK
     Route: 042
     Dates: start: 20110506, end: 20110506
  18. SYMBICORT [Concomitant]
     Indication: PRODUCT USED FOR UNKNOWN INDICATION
     Dosage: 160-4.5 MCG, BID
     Route: 065
     Dates: start: 20090605
  19. THYMOGLOBULIN [Suspect]
     Indication: PROPHYLAXIS AGAINST TRANSPLANT REJECTION
     Dosage: UNK
     Route: 065
     Dates: start: 20110329, end: 20110408
  20. SYMBICORT [Concomitant]
     Dosage: 160-4.5 MCG, BID
     Route: 065
     Dates: start: 20110506, end: 20110507
  21. PROGRAF [Concomitant]
     Indication: PRODUCT USED FOR UNKNOWN INDICATION
     Dosage: 4 MG, QD
     Route: 048
     Dates: start: 20110506, end: 20110507
  22. ASPIRIN [Concomitant]
     Indication: PRODUCT USED FOR UNKNOWN INDICATION
     Dosage: 81 MG, QD
     Route: 048
  23. COLECALCIFEROL [Concomitant]
     Indication: PRODUCT USED FOR UNKNOWN INDICATION
     Dosage: 1000 IU, QD
     Route: 048
  24. MULTIVITAMIN [Concomitant]
     Indication: PRODUCT USED FOR UNKNOWN INDICATION
     Dosage: 1000 MCG, Q4W
     Route: 030
  25. CORTICOSTEROID NOS [Concomitant]
     Indication: PROPHYLAXIS AGAINST TRANSPLANT REJECTION
     Dosage: UNK
     Route: 065
  26. DEXTROSE 50% [Concomitant]
     Indication: BLOOD GLUCOSE DECREASED
     Dosage: 25 ML, PRN
     Route: 042
     Dates: start: 20110506, end: 20110507
  27. HUMALOG [Concomitant]
     Indication: TYPE 1 DIABETES MELLITUS
     Dosage: 15 IU, TID
     Route: 058
     Dates: start: 20110506, end: 20110507
  28. PROGRAF [Concomitant]
     Dosage: 3 MG, QD
     Route: 048
     Dates: start: 20110507, end: 20110507
  29. CELLCEPT [Concomitant]
     Indication: PROPHYLAXIS AGAINST TRANSPLANT REJECTION
     Dosage: UNK
     Route: 065
  30. TENORMIN [Concomitant]
     Indication: HYPERTENSION
     Dosage: 25 MG, QD
     Route: 048
     Dates: start: 20110506, end: 20110507
  31. TIAZAC [Concomitant]
     Indication: HYPERTENSION
     Dosage: 180 MG, BID
     Route: 048
     Dates: start: 20110506, end: 20110507
  32. PEPCID [Concomitant]
     Indication: PRODUCT USED FOR UNKNOWN INDICATION
     Dosage: 20 MG, QD
     Route: 048
     Dates: start: 20110506, end: 20110507
  33. LIDOCAINE [Concomitant]
     Indication: PRODUCT USED FOR UNKNOWN INDICATION
     Dosage: UNK ML, UNK
     Route: 065
     Dates: start: 20110506, end: 20110506
  34. MYFORTIC [Concomitant]
     Dosage: 720 MG, BID
     Route: 048
     Dates: start: 20110506, end: 20110507

REACTIONS (4)
  - ALOPECIA [None]
  - BLOOD CREATININE INCREASED [None]
  - DIZZINESS POSTURAL [None]
  - COMPLICATIONS OF TRANSPLANTED KIDNEY [None]
